FAERS Safety Report 13517645 (Version 2)
Quarter: 2017Q2

REPORT INFORMATION
  Report Type: Spontaneous
  Country: FR (occurrence: FR)
  Receive Date: 20170505
  Receipt Date: 20170512
  Transmission Date: 20170830
  Serious: Yes (Hospitalization)
  Sender: FDA-Public Use
  Company Number: FR-PFIZER INC-2017189205

PATIENT
  Age: 96 Year
  Sex: Female

DRUGS (6)
  1. SECTRAL [Interacting]
     Active Substance: ACEBUTOLOL HYDROCHLORIDE
     Dosage: 1 DF, (1 DF DOSAGE FORM EVERY 2 DAYS)
     Route: 048
     Dates: start: 2015, end: 20170103
  2. KARDEGIC [Concomitant]
     Active Substance: ASPIRIN LYSINE
     Dosage: UNK
  3. AZANTAC [Concomitant]
     Active Substance: RANITIDINE HYDROCHLORIDE
     Dosage: UNK
  4. ADANCOR [Interacting]
     Active Substance: NICORANDIL
     Dosage: UNK
     Route: 048
     Dates: start: 2015
  5. NITROGLYCERIN. [Interacting]
     Active Substance: NITROGLYCERIN
     Dosage: 10 MG/24 HOURS, TRANSDERMAL PATCH
     Route: 062
     Dates: start: 2015, end: 20170103
  6. ALDACTONE [Suspect]
     Active Substance: SPIRONOLACTONE
     Dosage: UNK
     Route: 048
     Dates: start: 2015

REACTIONS (4)
  - Hypotension [Recovered/Resolved]
  - Syncope [Recovered/Resolved]
  - Malaise [Recovered/Resolved]
  - Drug interaction [Recovered/Resolved]

NARRATIVE: CASE EVENT DATE: 20170103
